FAERS Safety Report 25628538 (Version 6)
Quarter: 2025Q4

REPORT INFORMATION
  Report Type: Spontaneous
  Country: US (occurrence: US)
  Receive Date: 20250731
  Receipt Date: 20251212
  Transmission Date: 20260117
  Serious: No
  Sender: TORRENT PHARMA INC.
  Company Number: US-TORRENT-00014451

PATIENT
  Sex: Female
  Weight: 120 kg

DRUGS (1)
  1. ZOLPIDEM TARTRATE [Suspect]
     Active Substance: ZOLPIDEM TARTRATE
     Indication: Sleep disorder
     Dosage: TAKE ONE TAB AT NIGHT
     Route: 065

REACTIONS (2)
  - Drug ineffective [Unknown]
  - Product quality issue [Unknown]
